FAERS Safety Report 5644753-3 (Version None)
Quarter: 2008Q1

REPORT INFORMATION
  Report Type: 
  Country: None (occurrence: None)
  Receive Date: 20080229
  Receipt Date: 20070717
  Transmission Date: 20080703
  Serious: No
  Sender: FDA-Public Use
  Company Number: A0664579A

PATIENT
  Age: 25 Year
  Sex: Female

DRUGS (2)
  1. VALTREX [Suspect]
     Indication: GENITAL HERPES
     Dosage: 1000MG ALTERNATE DAYS
     Route: 048
     Dates: start: 20060101
  2. BIRTH CONTROL [Concomitant]

REACTIONS (1)
  - HEADACHE [None]
